FAERS Safety Report 6066999-5 (Version None)
Quarter: 2009Q1

REPORT INFORMATION
  Report Type: 
  Country: None (occurrence: None)
  Receive Date: 20090205
  Receipt Date: 20090127
  Transmission Date: 20090719
  Serious: Yes (Other)
  Sender: FDA-Public Use
  Company Number: US-JNJFOC-20090200799

PATIENT
  Sex: Female

DRUGS (2)
  1. TYLENOL W/ CODEINE [Suspect]
     Indication: DRUG USE FOR UNKNOWN INDICATION
  2. BENADRYL [Suspect]
     Indication: DRUG USE FOR UNKNOWN INDICATION

REACTIONS (3)
  - HALLUCINATION [None]
  - OVERDOSE [None]
  - SUICIDE ATTEMPT [None]
